FAERS Safety Report 4353729-8 (Version None)
Quarter: 2004Q2

REPORT INFORMATION
  Report Type: 
  Country: None (occurrence: None)
  Receive Date: 20040430
  Receipt Date: 20031020
  Transmission Date: 20050107
  Serious: Yes (Hospitalization)
  Sender: FDA-Public Use
  Company Number: KDL052084

PATIENT
  Age: 74 Year
  Sex: Male
  Weight: 95.8 kg

DRUGS (16)
  1. EPOGEN [Suspect]
     Indication: ANAEMIA OF MALIGNANT DISEASE
     Dosage: INTERMITTENT
     Dates: start: 20030701
  2. SUCRALFATE [Concomitant]
  3. ATENOLOL [Concomitant]
  4. PANTOPRAZOLE SODIUM [Concomitant]
  5. ISOSORBIDE [Concomitant]
  6. OLMESARTAN MEDOXOMIL [Concomitant]
  7. RISEDRONATE SODIUM [Concomitant]
  8. IRON [Concomitant]
  9. BUPROPION HCL [Concomitant]
  10. ITRACONAZOLE [Concomitant]
  11. TAMSULOSIN HCL [Concomitant]
  12. ASPIRIN [Concomitant]
  13. CLOPIDOGREL BISULFATE [Concomitant]
  14. HYDROCODONE [Concomitant]
  15. FLUTICASONE/SALMETEROL [Concomitant]
  16. IPRATROPIUM BROMIDE/ALBUTEROL SULFATE [Concomitant]

REACTIONS (4)
  - DECREASED APPETITE [None]
  - DIARRHOEA [None]
  - DIZZINESS [None]
  - MYOCARDIAL INFARCTION [None]
